FAERS Safety Report 7819417-8 (Version None)
Quarter: 2011Q4

REPORT INFORMATION
  Report Type: 
  Country: None (occurrence: None)
  Receive Date: 20111018
  Receipt Date: 20101130
  Transmission Date: 20120403
  Serious: No
  Sender: FDA-Public Use
  Company Number: US-ASTRAZENECA-2010SE57052

PATIENT
  Age: 452 Month
  Sex: Male

DRUGS (1)
  1. SYMBICORT [Suspect]
     Indication: COUGH
     Dosage: SEVERAL MORE TIMES A DAY THAN THE 2 PUFFS IN AM AND THE 2 PUFFS IN PM
     Route: 055
     Dates: start: 20101111

REACTIONS (3)
  - DYSPNOEA [None]
  - INCORRECT DOSE ADMINISTERED [None]
  - DRUG DOSE OMISSION [None]
